FAERS Safety Report 7449245-7 (Version None)
Quarter: 2011Q2

REPORT INFORMATION
  Report Type: 
  Country: None (occurrence: None)
  Receive Date: 20110502
  Receipt Date: 20110421
  Transmission Date: 20111010
  Serious: Yes (Hospitalization, Other)
  Sender: FDA-Public Use
  Company Number: IT-BAYER-2011-033306

PATIENT
  Age: 45 Year
  Sex: Female

DRUGS (5)
  1. GABAPENTIN [Suspect]
     Dosage: UNK
     Dates: start: 20110330, end: 20110330
  2. TEGRETOL [Suspect]
     Dosage: UNK
     Dates: start: 20110330, end: 20110330
  3. STILNOX [Suspect]
     Dosage: UNK
     Dates: start: 20110330, end: 20110330
  4. ORAP [Suspect]
     Dosage: UNK
     Dates: start: 20110330, end: 20110330
  5. ASPIRIN [Suspect]
     Dosage: UNK
     Route: 048
     Dates: start: 20110330, end: 20110330

REACTIONS (2)
  - COMA [None]
  - SELF INJURIOUS BEHAVIOUR [None]
